FAERS Safety Report 7645826-6 (Version None)
Quarter: 2011Q3

REPORT INFORMATION
  Report Type: 
  Country: None (occurrence: None)
  Receive Date: 20110729
  Receipt Date: 20110715
  Transmission Date: 20111222
  Serious: Yes (Other)
  Sender: FDA-Public Use
  Company Number: US-WATSON-2011-10919

PATIENT
  Sex: Male

DRUGS (1)
  1. FENTANYL-75 [Suspect]
     Indication: PRODUCT USED FOR UNKNOWN INDICATION
     Dosage: UNK
     Route: 065
     Dates: start: 20090101

REACTIONS (5)
  - DRUG WITHDRAWAL SYNDROME [None]
  - CONVULSION [None]
  - FAECAL INCONTINENCE [None]
  - DRUG SCREEN NEGATIVE [None]
  - DRUG SCREEN POSITIVE [None]
